FAERS Safety Report 8027760-5 (Version None)
Quarter: 2012Q1

REPORT INFORMATION
  Report Type: 
  Country: None (occurrence: None)
  Receive Date: 20120106
  Receipt Date: 20120106
  Transmission Date: 20120608
  Serious: Yes (Other)
  Sender: FDA-Public Use
  Company Number: None

PATIENT
  Sex: Female
  Weight: 61.234 kg

DRUGS (3)
  1. LEVOFLOXACIN [Suspect]
     Indication: SINUSITIS
     Dosage: ONE TABLET
     Route: 048
     Dates: start: 20111221, end: 20111225
  2. LEVOFLOXACIN [Suspect]
     Indication: BRONCHITIS
     Dosage: ONE TABLET
     Route: 048
     Dates: start: 20111221, end: 20111225
  3. LEVOFLOXACIN [Suspect]
     Indication: EAR INFECTION
     Dosage: ONE TABLET
     Route: 048
     Dates: start: 20111221, end: 20111225

REACTIONS (8)
  - NAUSEA [None]
  - MOOD SWINGS [None]
  - DIZZINESS [None]
  - HEART RATE INCREASED [None]
  - HEADACHE [None]
  - INSOMNIA [None]
  - ABDOMINAL PAIN [None]
  - DEPRESSION [None]
